FAERS Safety Report 5943290-6 (Version None)
Quarter: 2008Q4

REPORT INFORMATION
  Report Type: 
  Country: None (occurrence: None)
  Receive Date: 20081106
  Receipt Date: 20081030
  Transmission Date: 20090506
  Serious: Yes (Hospitalization, Other)
  Sender: FDA-Public Use
  Company Number: PHEH2008US09802

PATIENT
  Sex: Female

DRUGS (5)
  1. EXFORGE [Suspect]
  2. LOPRESSOR [Concomitant]
  3. PLAVIX [Concomitant]
  4. MAXZIDE [Concomitant]
  5. ASPIRIN [Concomitant]

REACTIONS (3)
  - BLOOD CREATINE PHOSPHOKINASE INCREASED [None]
  - BLOOD CREATINE PHOSPHOKINASE MB INCREASED [None]
  - RHABDOMYOLYSIS [None]
